FAERS Safety Report 9220659 (Version 1)
Quarter: 2013Q2

REPORT INFORMATION
  Report Type: Report from Study
  Country: JP (occurrence: JP)
  Receive Date: 20130409
  Receipt Date: 20130409
  Transmission Date: 20140414
  Serious: Yes (Hospitalization)
  Sender: FDA-Public Use
  Company Number: JP-TEVA-396723ISR

PATIENT
  Age: 32 Year
  Sex: Male

DRUGS (11)
  1. FLUVOXAMINE MALEATE [Suspect]
     Dosage: PATIENT TOOK WITH ALCOHOL FLUVOXAMINE MALEATE 10 TABLETS
     Dates: start: 20110105
  2. SPRYCEL [Suspect]
     Indication: CHRONIC MYELOID LEUKAEMIA
     Dosage: 100 MILLIGRAM DAILY;
     Route: 048
     Dates: start: 20091109
  3. SPRYCEL [Suspect]
     Dosage: 100 MILLIGRAM DAILY;
     Dates: start: 20110722, end: 20110822
  4. DESYREL [Concomitant]
     Dates: start: 20101207, end: 20110108
  5. GASTER D [Concomitant]
     Dates: start: 20100319
  6. LAXOBERON [Concomitant]
     Dates: start: 20101105
  7. LUVOX [Concomitant]
     Dates: start: 20101207
  8. AMOXAN [Concomitant]
     Dates: start: 20101207
  9. MYSLEE [Concomitant]
     Dates: start: 20101207
  10. HALCION [Concomitant]
     Dates: start: 20101207
  11. CONSTAN [Concomitant]
     Dates: start: 20101207

REACTIONS (4)
  - Toxicity to various agents [Unknown]
  - Alcohol interaction [Unknown]
  - Overdose [Unknown]
  - Depressed level of consciousness [Unknown]
